FAERS Safety Report 6805417-3 (Version None)
Quarter: 2010Q2

REPORT INFORMATION
  Report Type: 
  Country: None (occurrence: None)
  Receive Date: 20100628
  Receipt Date: 20071206
  Transmission Date: 20101027
  Serious: Yes (Other)
  Sender: FDA-Public Use
  Company Number: US-PFIZER INC-2007098874

PATIENT
  Sex: Male
  Weight: 99.8 kg

DRUGS (4)
  1. GEODON [Suspect]
     Indication: BIPOLAR DISORDER
     Dates: start: 20071116
  2. LEXAPRO [Concomitant]
  3. PRILOSEC [Concomitant]
  4. BENADRYL [Concomitant]

REACTIONS (4)
  - ABNORMAL BEHAVIOUR [None]
  - AGGRESSION [None]
  - BIPOLAR DISORDER [None]
  - INSOMNIA [None]
